FAERS Safety Report 9789153 (Version 2)
Quarter: 2014Q1

REPORT INFORMATION
  Report Type: Spontaneous
  Country: US (occurrence: US)
  Receive Date: 20131230
  Receipt Date: 20140220
  Transmission Date: 20141002
  Serious: No
  Sender: FDA-Public Use
  Company Number: US-GILEAD-2013-0091013

PATIENT
  Sex: Male

DRUGS (3)
  1. LETAIRIS [Suspect]
     Indication: PULMONARY HYPERTENSION
     Dosage: 10 MG, QD
     Route: 048
     Dates: start: 20101025
  2. LETAIRIS [Suspect]
     Indication: THALASSAEMIA
  3. REVATIO [Concomitant]

REACTIONS (2)
  - Nasopharyngitis [Unknown]
  - Sinus headache [Unknown]
